FAERS Safety Report 11479104 (Version 1)
Quarter: 2015Q3

REPORT INFORMATION
  Report Type: Spontaneous
  Country: US (occurrence: US)
  Receive Date: 20150909
  Receipt Date: 20150909
  Transmission Date: 20151125
  Serious: No
  Sender: FDA-Public Use
  Company Number: US-JAZZ-2014-US-013023

PATIENT
  Age: 51 Year
  Sex: Female
  Weight: 52.15 kg

DRUGS (2)
  1. XYREM [Suspect]
     Active Substance: SODIUM OXYBATE
     Indication: NARCOLEPSY
     Dosage: ABOUT 2 GRAMS , BID
     Route: 048
     Dates: start: 20141011, end: 201410
  2. XYREM [Suspect]
     Active Substance: SODIUM OXYBATE
     Indication: SOMNOLENCE
     Dosage: ABOUT 2 GRAMS, BID
     Route: 048
     Dates: start: 20141018, end: 201410

REACTIONS (8)
  - Nausea [Unknown]
  - Headache [Unknown]
  - Feeling jittery [Recovered/Resolved]
  - Dyskinesia [Recovered/Resolved]
  - Migraine [Recovered/Resolved]
  - Dizziness [Recovered/Resolved]
  - Malaise [Unknown]
  - Muscle spasms [Recovered/Resolved]

NARRATIVE: CASE EVENT DATE: 201410
